FAERS Safety Report 12829779 (Version 1)
Quarter: 2016Q4

REPORT INFORMATION
  Report Type: Spontaneous
  Country: US (occurrence: US)
  Receive Date: 20161007
  Receipt Date: 20161007
  Transmission Date: 20170207
  Serious: No
  Sender: FDA-Public Use
  Company Number: US-SA-2016SA114657

PATIENT
  Age: 50 Year
  Sex: Female

DRUGS (11)
  1. FLEXERIL [Concomitant]
     Active Substance: CYCLOBENZAPRINE HYDROCHLORIDE
  2. AUBAGIO [Suspect]
     Active Substance: TERIFLUNOMIDE
     Indication: MULTIPLE SCLEROSIS
     Route: 048
  3. LASIX [Concomitant]
     Active Substance: FUROSEMIDE
  4. DOXEPIN HYDROCHLORIDE. [Concomitant]
     Active Substance: DOXEPIN HYDROCHLORIDE
  5. MELATONIN [Concomitant]
     Active Substance: MELATONIN
  6. CYMBALTA [Concomitant]
     Active Substance: DULOXETINE HYDROCHLORIDE
  7. PROMETHAZINE HYDROCHLORIDE. [Concomitant]
     Active Substance: PROMETHAZINE HYDROCHLORIDE
  8. AUBAGIO [Suspect]
     Active Substance: TERIFLUNOMIDE
     Indication: MULTIPLE SCLEROSIS
     Route: 048
  9. EPINEPHRINE. [Concomitant]
     Active Substance: EPINEPHRINE
  10. PRILOSEC [Concomitant]
     Active Substance: OMEPRAZOLE MAGNESIUM
  11. CELEXA [Concomitant]
     Active Substance: CITALOPRAM HYDROBROMIDE

REACTIONS (14)
  - Panic attack [Recovering/Resolving]
  - Decreased interest [Recovering/Resolving]
  - Joint swelling [Recovering/Resolving]
  - Fatigue [Unknown]
  - Hot flush [Recovering/Resolving]
  - Diarrhoea [Unknown]
  - Tachycardia [Recovering/Resolving]
  - Paraesthesia [Recovering/Resolving]
  - Burning sensation [Unknown]
  - Off label use [Unknown]
  - Constipation [Unknown]
  - Hypertension [Recovering/Resolving]
  - Paraesthesia [Unknown]
  - Unevaluable event [Unknown]
